FAERS Safety Report 7728928-5 (Version None)
Quarter: 2011Q3

REPORT INFORMATION
  Report Type: 
  Country: None (occurrence: None)
  Receive Date: 20110906
  Receipt Date: 20110902
  Transmission Date: 20111222
  Serious: Yes (Other)
  Sender: FDA-Public Use
  Company Number: IT-BAYER-2011-081355

PATIENT
  Age: 63 Year
  Sex: Male

DRUGS (6)
  1. ASPIRIN [Concomitant]
     Dosage: 100 MG, QD
     Route: 048
  2. TENORMIN [Concomitant]
     Dosage: DAILY DOSE 100 MG
     Route: 048
  3. CARDURA [Concomitant]
     Dosage: DAILY DOSE 2 MG
     Route: 048
  4. NEXAVAR [Suspect]
     Dosage: DAILY DOSE 800 MG
     Route: 048
     Dates: start: 20100907
  5. GLUCOPHAGE [Concomitant]
     Dosage: DAILY DOSE 500 MG
     Route: 048
  6. VALSARTAN  AND HYDROCHLOROTHIAZIDE [Concomitant]
     Dosage: DAILY DOSE 185 MG
     Route: 048

REACTIONS (3)
  - TROPONIN INCREASED [None]
  - DYSPNOEA [None]
  - OEDEMA PERIPHERAL [None]
